FAERS Safety Report 18806296 (Version 1)
Quarter: 2021Q1

REPORT INFORMATION
  Report Type: Spontaneous
  Country: US (occurrence: US)
  Receive Date: 20210128
  Receipt Date: 20210128
  Transmission Date: 20210419
  Serious: Yes (Hospitalization)
  Sender: FDA-Public Use
  Company Number: US-STRONGBRIDGE BIOPHARMA-2021-STR-000022

PATIENT
  Age: 49 Year
  Sex: Female

DRUGS (1)
  1. KEVEYIS [Suspect]
     Active Substance: DICHLORPHENAMIDE
     Indication: FAMILIAL PERIODIC PARALYSIS
     Dosage: 50 MG, BID
     Route: 048

REACTIONS (4)
  - Blood potassium abnormal [Recovering/Resolving]
  - Disease recurrence [Recovering/Resolving]
  - Haemoglobin decreased [Unknown]
  - Product dose omission issue [None]

NARRATIVE: CASE EVENT DATE: 20210118
